FAERS Safety Report 18227478 (Version 1)
Quarter: 2020Q3

REPORT INFORMATION
  Report Type: Spontaneous
  Country: CA (occurrence: CA)
  Receive Date: 20200903
  Receipt Date: 20200903
  Transmission Date: 20201103
  Serious: Yes (Other)
  Sender: FDA-Public Use
  Company Number: CA-009507513-2009CAN000643

PATIENT
  Age: 6 Year
  Sex: Male
  Weight: 23 kg

DRUGS (2)
  1. URSODIOL. [Concomitant]
     Active Substance: URSODIOL
     Dosage: DOSAGE FORM: NOT SPECIFIED
     Route: 065
  2. SINGULAIR [Suspect]
     Active Substance: MONTELUKAST SODIUM
     Indication: NASAL INFLAMMATION
     Dosage: 5 MG, 1 EVERY 1 DAYS
     Route: 048

REACTIONS (5)
  - Anger [Unknown]
  - Suicidal ideation [Unknown]
  - Attention deficit hyperactivity disorder [Unknown]
  - Hostility [Unknown]
  - Depression [Unknown]
